FAERS Safety Report 24592338 (Version 1)
Quarter: 2024Q4

REPORT INFORMATION
  Report Type: Spontaneous
  Country: US (occurrence: US)
  Receive Date: 20241108
  Receipt Date: 20241108
  Transmission Date: 20250114
  Serious: Yes (Hospitalization)
  Sender: AUROBINDO
  Company Number: US-MLMSERVICE-20241021-PI231431-00271-1

PATIENT
  Age: 36 Year
  Sex: Male

DRUGS (7)
  1. DEXAMETHASONE [Suspect]
     Active Substance: DEXAMETHASONE
     Indication: Myopericarditis
     Dosage: 10 MILLIGRAM, TWO TIMES A DAY (DEXAMETHASONE 10 MG TWICE DAILY)
     Route: 048
     Dates: start: 2023, end: 2023
  2. METHYLPREDNISOLONE [Suspect]
     Active Substance: METHYLPREDNISOLONE
     Indication: Myopericarditis
     Dosage: 60 MG TWICE DAILY
     Route: 051
     Dates: start: 2023, end: 2023
  3. PREDNISONE [Suspect]
     Active Substance: PREDNISONE
     Indication: Sinusitis
     Dosage: UNK
     Route: 065
     Dates: start: 2023, end: 2023
  4. PREDNISONE [Suspect]
     Active Substance: PREDNISONE
     Indication: Myopericarditis
     Dosage: 60 MILLIGRAM, ONCE A DAY (FOR 3 WEEKS)
     Route: 048
     Dates: start: 2023, end: 2023
  5. PREDNISOLONE [Suspect]
     Active Substance: PREDNISOLONE
     Indication: Myopericarditis
     Dosage: 60 MILLIGRAM, ONCE A DAY (HIGH DOSES)
     Route: 048
     Dates: start: 2023, end: 2023
  6. AZITHROMYCIN [Concomitant]
     Active Substance: AZITHROMYCIN
     Indication: Sinusitis
     Dosage: UNK
     Route: 065
     Dates: start: 2023
  7. COLCHICINE [Concomitant]
     Active Substance: COLCHICINE
     Indication: Myopericarditis
     Dosage: 0.6 MILLIGRAM, ONCE A DAY
     Route: 065
     Dates: start: 2023

REACTIONS (1)
  - Substance-induced psychotic disorder [Recovering/Resolving]

NARRATIVE: CASE EVENT DATE: 20230101
